FAERS Safety Report 9440993 (Version 1)
Quarter: 2013Q3

REPORT INFORMATION
  Report Type: Spontaneous
  Country: US (occurrence: None)
  Receive Date: 20130801
  Receipt Date: 20130801
  Transmission Date: 20140515
  Serious: Yes (Other)
  Sender: FDA-Public Use
  Company Number: ACO_36990_2013

PATIENT
  Age: 59 Year
  Sex: Female

DRUGS (2)
  1. AMPYRA (DALFAMPRIDINE) TABLET, 10MG [Suspect]
     Indication: PRODUCT USED FOR UNKNOWN INDICATION
     Dates: start: 2010, end: 201301
  2. COPAXONE (GLATIRAMER ACETATE) [Concomitant]

REACTIONS (2)
  - Ovarian cancer [None]
  - Optic neuritis [None]
